FAERS Safety Report 21188848 (Version 1)
Quarter: 2022Q3

REPORT INFORMATION
  Report Type: Spontaneous
  Country: US (occurrence: US)
  Receive Date: 20220809
  Receipt Date: 20220809
  Transmission Date: 20221027
  Serious: No
  Sender: FDA-Public Use
  Company Number: US-GSKCCFUS-Case-01456258_AE-83427

PATIENT
  Sex: Female

DRUGS (1)
  1. BENLYSTA [Suspect]
     Active Substance: BELIMUMAB
     Indication: Product used for unknown indication
     Dosage: UNK
     Dates: start: 2021

REACTIONS (5)
  - Infection [Unknown]
  - COVID-19 [Unknown]
  - Haematoma [Unknown]
  - Sinusitis [Unknown]
  - Tooth infection [Unknown]

NARRATIVE: CASE EVENT DATE: 20211201
